FAERS Safety Report 5580379-8 (Version None)
Quarter: 2007Q4

REPORT INFORMATION
  Report Type: 
  Country: None (occurrence: None)
  Receive Date: 20071227
  Receipt Date: 20071219
  Transmission Date: 20080405
  Serious: Yes (Death, Other)
  Sender: FDA-Public Use
  Company Number: 2007SP025215

PATIENT
  Age: 58 Year
  Sex: Female

DRUGS (2)
  1. NOXAFIL [Suspect]
     Indication: COCCIDIOIDOMYCOSIS
     Dosage: 200 MG; Q8H; GT, 3400 MG; ONCE; GT
     Dates: start: 20071217
  2. NOXAFIL [Suspect]
     Indication: COCCIDIOIDOMYCOSIS
     Dosage: 200 MG; Q8H; GT, 3400 MG; ONCE; GT
     Dates: start: 20071218

REACTIONS (1)
  - OVERDOSE [None]
